FAERS Safety Report 16792033 (Version 2)
Quarter: 2019Q3

REPORT INFORMATION
  Report Type: Spontaneous
  Country: FR (occurrence: FR)
  Receive Date: 20190910
  Receipt Date: 20190912
  Transmission Date: 20191005
  Serious: Yes (Hospitalization, Other)
  Sender: FDA-Public Use
  Company Number: FR-SA-2019SA250025

PATIENT
  Age: 58 Year
  Sex: Female
  Weight: 68.5 kg

DRUGS (4)
  1. HYDREA [Suspect]
     Active Substance: HYDROXYUREA
     Indication: ACUTE MYELOID LEUKAEMIA
     Dosage: 9 DF, QD
     Route: 048
     Dates: start: 20190424, end: 20190424
  2. FASTURTEC [Suspect]
     Active Substance: RASBURICASE
     Dosage: 7.5 MG
     Route: 041
     Dates: start: 20190430, end: 20190430
  3. HYDREA [Suspect]
     Active Substance: HYDROXYUREA
     Dosage: 12 DF, QD
     Route: 048
     Dates: start: 20190425, end: 20190502
  4. FASTURTEC [Suspect]
     Active Substance: RASBURICASE
     Indication: TUMOUR LYSIS SYNDROME
     Dosage: 7.5 MG
     Route: 041
     Dates: start: 20190425, end: 20190425

REACTIONS (2)
  - Prothrombin time ratio decreased [Recovered/Resolved]
  - Disseminated intravascular coagulation [Recovered/Resolved]

NARRATIVE: CASE EVENT DATE: 20190427
